FAERS Safety Report 6271260-X (Version None)
Quarter: 2009Q3

REPORT INFORMATION
  Report Type: 
  Country: None (occurrence: None)
  Receive Date: 20090717
  Receipt Date: 20090616
  Transmission Date: 20100115
  Serious: No
  Sender: FDA-Public Use
  Company Number: US-BAYER-200923981NA

PATIENT
  Sex: Male

DRUGS (4)
  1. LEVITRA [Suspect]
     Indication: DRUG USE FOR UNKNOWN INDICATION
     Dosage: SAMPLE
  2. LEVITRA [Suspect]
     Dosage: UNIT DOSE: 20 MG
     Dates: start: 20090611
  3. METOPROLOL [Concomitant]
  4. FLOMAX [Concomitant]

REACTIONS (3)
  - FLUSHING [None]
  - HYPOAESTHESIA ORAL [None]
  - NASAL CONGESTION [None]
